FAERS Safety Report 5206824-5 (Version None)
Quarter: 2006Q4

REPORT INFORMATION
  Report Type: 
  Country: None (occurrence: None)
  Receive Date: 20061026
  Receipt Date: 20060814
  Transmission Date: 20070319
  Serious: No
  Sender: FDA-Public Use
  Company Number: 2006099744

PATIENT
  Age: 82 Year
  Sex: Male
  Weight: 83.4619 kg

DRUGS (13)
  1. LYRICA [Suspect]
     Indication: MYALGIA
     Dosage: 100 MG (50 MG, 2 IN 1 D)
     Dates: start: 20060712
  2. TENORMIN [Concomitant]
  3. ALTACE [Concomitant]
  4. IMDUR [Concomitant]
  5. ASPIRIN [Concomitant]
  6. GLUCOVANCE [Concomitant]
  7. HUMULIN (INSULIN HUMAN, INSULIN ISOPHANE, HUMAN BIOSYNTHETIC) [Concomitant]
  8. NOVOLOG [Concomitant]
  9. QUININE [Concomitant]
  10. SPIRONOLACTONE [Concomitant]
  11. NAPROSYN [Concomitant]
  12. MOBIC [Concomitant]
  13. IBUPROFEN [Concomitant]

REACTIONS (3)
  - ASTHENIA [None]
  - CONDITION AGGRAVATED [None]
  - MYALGIA [None]
